FAERS Safety Report 7270316-2 (Version None)
Quarter: 2011Q1

REPORT INFORMATION
  Report Type: 
  Country: None (occurrence: None)
  Receive Date: 20110202
  Receipt Date: 20110107
  Transmission Date: 20110831
  Serious: Yes (Other)
  Sender: FDA-Public Use
  Company Number: US-BAYER-200940978NA

PATIENT
  Sex: Female
  Weight: 94.331 kg

DRUGS (5)
  1. YAZ [Suspect]
     Indication: PRODUCT USED FOR UNKNOWN INDICATION
     Dosage: 1 DF (DAILY DOSE), QD, ORAL
     Route: 048
  2. PERCOCET [Concomitant]
     Dosage: UNK
     Dates: end: 20090422
  3. IBUPROFEN [Concomitant]
     Dosage: UNK
     Dates: end: 20090422
  4. UNCODEABLE ^UNCLASSIFIABLE^ [Concomitant]
     Dosage: UNK
     Dates: end: 20090422
  5. UNCODEABLE ^UNCLASSIFIABLE^ [Concomitant]

REACTIONS (5)
  - ABDOMINAL PAIN UPPER [None]
  - BILIARY COLIC [None]
  - HEPATIC ENZYME ABNORMAL [None]
  - CHOLELITHIASIS [None]
  - CHOLECYSTITIS CHRONIC [None]
